FAERS Safety Report 20638835 (Version 1)
Quarter: 2022Q1

REPORT INFORMATION
  Report Type: Spontaneous
  Country: FR (occurrence: FR)
  Receive Date: 20220325
  Receipt Date: 20220325
  Transmission Date: 20220423
  Serious: Yes (Death, Other)
  Sender: FDA-Public Use
  Company Number: FR-ANIPHARMA-2022-FR-000045

PATIENT
  Age: 76 Year
  Sex: Female
  Weight: 79 kg

DRUGS (9)
  1. CANDESARTAN CILEXETIL [Suspect]
     Active Substance: CANDESARTAN CILEXETIL
     Indication: Hypertension
     Dosage: 16 MG DAILY
     Route: 048
     Dates: start: 2018, end: 20181025
  2. ESOMEPRAZOLE [Suspect]
     Active Substance: ESOMEPRAZOLE
     Dosage: 1 DF DAILY
     Route: 048
     Dates: end: 20181025
  3. DUTASTERIDE\TAMSULOSIN [Suspect]
     Active Substance: DUTASTERIDE\TAMSULOSIN
     Dosage: 0.5 MG/0.4 MG 1 DF DAILY
     Route: 048
     Dates: end: 20181025
  4. MIANSERIN HYDROCHLORIDE [Suspect]
     Active Substance: MIANSERIN HYDROCHLORIDE
     Dosage: 1 DF DAILY
     Route: 048
     Dates: end: 20181025
  5. KARDEGIC [Suspect]
     Active Substance: ASPIRIN DL-LYSINE
     Dosage: 1 DF DAILY
     Route: 048
     Dates: end: 20181025
  6. RISPERIDONE [Suspect]
     Active Substance: RISPERIDONE
     Dosage: .5 MG DAILY
     Route: 048
     Dates: start: 20160901, end: 20180925
  7. CYMBALTA [Suspect]
     Active Substance: DULOXETINE HYDROCHLORIDE
     Dosage: 1 DF DAILY
     Route: 048
     Dates: start: 20160901, end: 20180925
  8. OXAZEPAM [Suspect]
     Active Substance: OXAZEPAM
     Dosage: 1 DF DAILY
     Route: 048
     Dates: start: 20160715, end: 20180925
  9. METOCLOPRAMIDE HYDROCHLORIDE [Suspect]
     Active Substance: METOCLOPRAMIDE HYDROCHLORIDE
     Dosage: 1 DF DAILY
     Route: 048
     Dates: end: 20181025

REACTIONS (9)
  - Livedo reticularis [Unknown]
  - Fall [Fatal]
  - Acute kidney injury [Fatal]
  - Metabolic acidosis [Fatal]
  - Metabolic encephalopathy [Fatal]
  - Coma [Unknown]
  - Head injury [Unknown]
  - Lower respiratory tract congestion [Unknown]
  - Contusion [Unknown]

NARRATIVE: CASE EVENT DATE: 20181024
